FAERS Safety Report 6869750-1 (Version None)
Quarter: 2010Q3

REPORT INFORMATION
  Report Type: 
  Country: None (occurrence: None)
  Receive Date: 20100722
  Receipt Date: 20080827
  Transmission Date: 20110219
  Serious: No
  Sender: FDA-Public Use
  Company Number: US-PFIZER INC-2008067696

PATIENT
  Sex: Female
  Weight: 65 kg

DRUGS (4)
  1. CHANTIX [Suspect]
     Indication: SMOKING CESSATION THERAPY
     Route: 048
     Dates: start: 20080808, end: 20080811
  2. LIPITOR [Concomitant]
  3. METHADONE HCL [Concomitant]
  4. TAXOL [Concomitant]

REACTIONS (3)
  - CRYING [None]
  - HEADACHE [None]
  - WEIGHT INCREASED [None]
